FAERS Safety Report 10370653 (Version 2)
Quarter: 2014Q3

REPORT INFORMATION
  Report Type: Report from Study
  Country: JP (occurrence: JP)
  Receive Date: 20140808
  Receipt Date: 20140808
  Transmission Date: 20150326
  Serious: Yes (Death)
  Sender: FDA-Public Use
  Company Number: JP-PFIZER INC-2014181892

PATIENT
  Age: 49 Year
  Sex: Male
  Weight: 57 kg

DRUGS (14)
  1. XALKORI [Suspect]
     Active Substance: CRIZOTINIB
     Dosage: 250 MG, 2X/DAY
     Route: 048
     Dates: start: 20120705, end: 20120809
  2. MORPHINE [Concomitant]
     Active Substance: MORPHINE
     Dosage: 50 MG, 1X/DAY
     Dates: start: 20120818, end: 20120820
  3. CODEINE PHOSPHATE [Concomitant]
     Active Substance: CODEINE PHOSPHATE
     Dosage: 20 MG, UNK
     Route: 048
     Dates: start: 20120806, end: 20120813
  4. KYTRIL [Concomitant]
     Active Substance: GRANISETRON HYDROCHLORIDE
     Dosage: 2 MG, 1X/DAY
     Route: 048
     Dates: start: 20120809, end: 20120813
  5. DEPAS [Concomitant]
     Active Substance: ETIZOLAM
     Dosage: 0.5 MG, AS NEEDED
     Route: 048
     Dates: start: 20120629, end: 20120822
  6. PREDONINE [Concomitant]
     Active Substance: PREDNISOLONE\PREDNISOLONE ACETATE\PREDNISOLONE SODIUM SUCCINATE
     Dosage: 30 MG, 1X/DAY
     Dates: start: 20120818, end: 20120822
  7. MEILAX [Concomitant]
     Active Substance: ETHYL LOFLAZEPATE
     Dosage: 1 MG, 1X/DAY
     Route: 048
     Dates: start: 20120629, end: 20120822
  8. PARIET [Concomitant]
     Active Substance: RABEPRAZOLE SODIUM
     Dosage: 10 MG, 1X/DAY
     Route: 048
     Dates: start: 20120704, end: 20120822
  9. PREDNIN [Concomitant]
     Dosage: 30 MG, 1X/DAY
     Route: 048
     Dates: start: 20120809, end: 20120817
  10. LOXONIN [Concomitant]
     Active Substance: LOXOPROFEN SODIUM
     Dosage: 60 MG, 3X/DAY
     Route: 048
     Dates: start: 20120711, end: 20120822
  11. PREDNIN [Concomitant]
     Dosage: 20 MG, 1X/DAY
     Route: 048
     Dates: start: 20120818, end: 20120822
  12. PRIMPERAN [Concomitant]
     Active Substance: METOCLOPRAMIDE HYDROCHLORIDE
     Dosage: 5 MG, 3X/DAY
     Route: 048
     Dates: start: 20120809, end: 20120815
  13. OPSO [Concomitant]
     Active Substance: MORPHINE HYDROCHLORIDE
     Dosage: 2.5 ML, AS NEEDED
     Route: 048
     Dates: start: 20120810, end: 20120822
  14. XALKORI [Suspect]
     Active Substance: CRIZOTINIB
     Indication: NON-SMALL CELL LUNG CANCER
     Dosage: 250 MG, 2X/DAY
     Route: 048
     Dates: start: 20120610, end: 20120625

REACTIONS (1)
  - Death [Fatal]

NARRATIVE: CASE EVENT DATE: 20120824
